FAERS Safety Report 5808776-3 (Version None)
Quarter: 2008Q3

REPORT INFORMATION
  Report Type: 
  Country: None (occurrence: None)
  Receive Date: 20080710
  Receipt Date: 20080710
  Transmission Date: 20090109
  Serious: Yes (Hospitalization)
  Sender: FDA-Public Use
  Company Number: None

PATIENT
  Sex: Female
  Weight: 54 kg

DRUGS (5)
  1. TEMOZOLOMIDE [Suspect]
     Dosage: 1150 MG
  2. COUMADIN [Concomitant]
  3. DECADRON [Concomitant]
  4. GLYBURIDE [Concomitant]
  5. TOPAMAX [Concomitant]

REACTIONS (2)
  - CONVULSION [None]
  - PNEUMONIA [None]
